FAERS Safety Report 10678183 (Version 1)
Quarter: 2014Q4

REPORT INFORMATION
  Report Type: Spontaneous
  Country: US (occurrence: None)
  Receive Date: 20141223
  Receipt Date: 20141223
  Transmission Date: 20150529
  Serious: Yes (Hospitalization, Other)
  Sender: FDA-Public Use
  Company Number: ADR-2014-02393

PATIENT
  Age: 21 Year
  Sex: Female

DRUGS (1)
  1. BACLOFEN. [Suspect]
     Active Substance: BACLOFEN
     Indication: MUSCLE SPASTICITY

REACTIONS (7)
  - Condition aggravated [None]
  - Mental status changes [None]
  - Post procedural infection [None]
  - Implant site infection [None]
  - Delirium [None]
  - Muscle spasticity [None]
  - Device occlusion [None]
